FAERS Safety Report 8154474-3 (Version None)
Quarter: 2012Q1

REPORT INFORMATION
  Report Type: 
  Country: None (occurrence: None)
  Receive Date: 20120221
  Receipt Date: 20120213
  Transmission Date: 20120608
  Serious: No
  Sender: FDA-Public Use
  Company Number: US-B.I. PHARMACEUTICALS,INC./RIDGEFIELD-2012-BP-02817BP

PATIENT
  Age: 88 Year
  Sex: Female

DRUGS (5)
  1. PLAVIX [Concomitant]
     Indication: ATRIAL FIBRILLATION
  2. MICARDIS [Suspect]
     Indication: HYPERTENSION
     Dosage: 80 MG
     Route: 048
     Dates: start: 20120201
  3. SYNTHROID [Concomitant]
     Indication: THYROID DISORDER
  4. SOLAR [Concomitant]
     Indication: HYPERTENSION
  5. ASPIRIN [Concomitant]

REACTIONS (4)
  - BACK PAIN [None]
  - PALPITATIONS [None]
  - HYPERTENSION [None]
  - FATIGUE [None]
